FAERS Safety Report 6074212-8 (Version None)
Quarter: 2009Q1

REPORT INFORMATION
  Report Type: 
  Country: None (occurrence: None)
  Receive Date: 20090211
  Receipt Date: 20090130
  Transmission Date: 20090719
  Serious: Yes (Death, Life-Threatening, Hospitalization)
  Sender: FDA-Public Use
  Company Number: JP-SANOFI-SYNTHELABO-A01200815922

PATIENT
  Sex: Male
  Weight: 51.7 kg

DRUGS (9)
  1. SODIUM CHLORIDE [Concomitant]
     Indication: HYPONATRAEMIA
     Route: 048
  2. BUFFERIN [Concomitant]
     Indication: CORONARY ANGIOPLASTY
     Route: 048
  3. SELBEX [Concomitant]
     Indication: GASTRIC ULCER
     Route: 048
     Dates: start: 20081119, end: 20081210
  4. NICORANDIS [Concomitant]
     Indication: ANGINA UNSTABLE
     Route: 048
     Dates: start: 20081119, end: 20081210
  5. CYSCARBON [Concomitant]
     Indication: BRONCHITIS CHRONIC
     Route: 048
     Dates: start: 20081119, end: 20081210
  6. MAGMITT [Concomitant]
     Indication: CONSTIPATION
     Route: 048
     Dates: end: 20081210
  7. ARTIST [Concomitant]
     Indication: CARDIAC FAILURE CHRONIC
     Route: 048
     Dates: start: 20081119, end: 20081210
  8. PLAVIX [Suspect]
     Route: 048
     Dates: start: 20081119, end: 20081210
  9. PLAVIX [Suspect]
     Indication: CORONARY ARTERIAL STENT INSERTION
     Route: 048
     Dates: start: 20081119, end: 20081210

REACTIONS (2)
  - PANCYTOPENIA [None]
  - PYELONEPHRITIS ACUTE [None]
